FAERS Safety Report 12121554 (Version 1)
Quarter: 2016Q1

REPORT INFORMATION
  Report Type: Spontaneous
  Country: None (occurrence: US)
  Receive Date: 20160226
  Receipt Date: 20160226
  Transmission Date: 20160526
  Serious: No
  Sender: FDA-Public Use
  Company Number: US-ALLERGAN-1301640US

PATIENT
  Sex: Male

DRUGS (2)
  1. SOOTHE OINTMENT [Concomitant]
     Indication: DRY EYE
     Dosage: UNK, QHS
     Route: 047
     Dates: start: 201301
  2. REFRESH OPTIVE [Suspect]
     Active Substance: CARBOXYMETHYLCELLULOSE SODIUM\GLYCERIN
     Indication: DRY EYE
     Dosage: 2 GTT, PRN
     Route: 047
     Dates: start: 201301

REACTIONS (3)
  - Instillation site pain [Unknown]
  - Dry eye [Unknown]
  - Headache [Unknown]
